FAERS Safety Report 14913357 (Version 1)
Quarter: 2018Q2

REPORT INFORMATION
  Report Type: Spontaneous
  Country: US (occurrence: US)
  Receive Date: 20180501
  Receipt Date: 20180501
  Transmission Date: 20180711
  Serious: Yes (Hospitalization)
  Sender: FDA-Public Use
  Company Number: None

PATIENT
  Age: 65 Year
  Sex: Female

DRUGS (8)
  1. HYDROXYZ PAM [Concomitant]
     Active Substance: HYDROXYZINE PAMOATE
  2. OCALIVA [Suspect]
     Active Substance: OBETICHOLIC ACID
     Indication: PRIMARY BILIARY CHOLANGITIS
     Route: 048
     Dates: start: 20170731
  3. ASPIRIN. [Concomitant]
     Active Substance: ASPIRIN
  4. TRIAMT/HCTZ [Concomitant]
     Active Substance: HYDROCHLOROTHIAZIDE\TRIAMTERENE
  5. URSODIOL. [Concomitant]
     Active Substance: URSODIOL
  6. OXYCODONE [Concomitant]
     Active Substance: OXYCODONE
  7. POLYETH GLYC [Concomitant]
     Active Substance: POLYETHYLENE GLYCOLS
  8. DOK [Concomitant]
     Active Substance: DOCUSATE SODIUM

REACTIONS (2)
  - Knee arthroplasty [None]
  - Therapy cessation [None]
